FAERS Safety Report 10582793 (Version 3)
Quarter: 2015Q2

REPORT INFORMATION
  Report Type: Spontaneous
  Country: AE (occurrence: AE)
  Receive Date: 20141113
  Receipt Date: 20150424
  Transmission Date: 20150821
  Serious: Yes (Life-Threatening, Hospitalization, Other)
  Sender: FDA-Public Use
  Company Number: PHHY2014AE146035

PATIENT
  Age: 2 Year
  Sex: Female
  Weight: 13 kg

DRUGS (2)
  1. ILARIS [Suspect]
     Active Substance: CANAKINUMAB
     Indication: JUVENILE IDIOPATHIC ARTHRITIS
     Dosage: 4 MG/KG, QMO
     Route: 058
     Dates: start: 20141009, end: 20141104
  2. ILARIS [Suspect]
     Active Substance: CANAKINUMAB
     Dosage: 4 MG/KG, QMO
     Route: 058
     Dates: start: 20150222, end: 20150315

REACTIONS (6)
  - Hepatomegaly [Unknown]
  - Nervous system disorder [Unknown]
  - Histiocytosis haematophagic [Unknown]
  - Splenomegaly [Unknown]
  - Lymphadenopathy [Unknown]
  - Haemorrhage [Unknown]

NARRATIVE: CASE EVENT DATE: 20141028
